FAERS Safety Report 19032194 (Version 2)
Quarter: 2021Q1

REPORT INFORMATION
  Report Type: Report from Study
  Country: FR (occurrence: FR)
  Receive Date: 20210319
  Receipt Date: 20210322
  Transmission Date: 20210420
  Serious: Yes (Hospitalization)
  Sender: FDA-Public Use
  Company Number: FR-JNJFOC-20210320093

PATIENT
  Age: 54 Year
  Sex: Male

DRUGS (16)
  1. SPRAVATO [Suspect]
     Active Substance: ESKETAMINE
     Dates: end: 20200917
  2. SPRAVATO [Suspect]
     Active Substance: ESKETAMINE
     Dates: start: 20200928
  3. LITHIUM. [Concomitant]
     Active Substance: LITHIUM
     Indication: DRUG THERAPY ENHANCEMENT
     Route: 065
     Dates: start: 20200323
  4. NARDIL [Concomitant]
     Active Substance: PHENELZINE SULFATE
     Route: 065
     Dates: start: 20200323, end: 20200917
  5. NARDIL [Concomitant]
     Active Substance: PHENELZINE SULFATE
     Indication: ANTIDEPRESSANT THERAPY
     Route: 065
     Dates: start: 20200323, end: 20200917
  6. PREGABALINE [Concomitant]
     Active Substance: PREGABALIN
     Indication: PRODUCT USED FOR UNKNOWN INDICATION
     Route: 065
     Dates: start: 20180911
  7. SELEGILINE [Concomitant]
     Active Substance: SELEGILINE
     Route: 065
     Dates: start: 20201022
  8. SPRAVATO [Suspect]
     Active Substance: ESKETAMINE
     Indication: DEPRESSION
  9. SPRAVATO [Suspect]
     Active Substance: ESKETAMINE
     Dates: start: 20200504, end: 20200504
  10. T3 [Concomitant]
     Active Substance: LIOTHYRONINE SODIUM
     Indication: DRUG THERAPY ENHANCEMENT
     Route: 065
     Dates: start: 20200323, end: 20200610
  11. SELEGILINE [Concomitant]
     Active Substance: SELEGILINE
     Indication: ANTIDEPRESSANT THERAPY
     Route: 065
     Dates: start: 20201023
  12. SPRAVATO [Suspect]
     Active Substance: ESKETAMINE
     Dates: start: 20201207, end: 20201207
  13. SPRAVATO [Suspect]
     Active Substance: ESKETAMINE
     Dates: start: 20210208, end: 20210208
  14. SPRAVATO [Suspect]
     Active Substance: ESKETAMINE
  15. SPRAVATO [Suspect]
     Active Substance: ESKETAMINE
     Dates: start: 20200904, end: 20200904
  16. SPRAVATO [Suspect]
     Active Substance: ESKETAMINE
     Dates: start: 20201211, end: 20201211

REACTIONS (8)
  - Off label use [Unknown]
  - Euphoric mood [Unknown]
  - Drug ineffective [Unknown]
  - Hyposomnia [Unknown]
  - Depression [Unknown]
  - Hospitalisation [Recovered/Resolved]
  - Confusional state [Recovered/Resolved]
  - Product use issue [Unknown]

NARRATIVE: CASE EVENT DATE: 20200323
